FAERS Safety Report 6637082-2 (Version None)
Quarter: 2010Q1

REPORT INFORMATION
  Report Type: 
  Country: None (occurrence: None)
  Receive Date: 20100316
  Receipt Date: 20100308
  Transmission Date: 20100710
  Serious: Yes (Hospitalization)
  Sender: FDA-Public Use
  Company Number: FR-ROCHE-690226

PATIENT
  Sex: Male
  Weight: 66 kg

DRUGS (13)
  1. ACTEMRA [Suspect]
     Indication: RHEUMATOID ARTHRITIS
     Dosage: FORM: INFUSION
     Route: 042
     Dates: start: 20090928
  2. CORTANCYL [Suspect]
     Indication: RHEUMATOID ARTHRITIS
     Route: 048
     Dates: start: 20090928
  3. SOLU-MEDROL [Suspect]
     Indication: RHEUMATOID ARTHRITIS
     Dosage: RECEIVED 3 BOLUS
     Route: 040
     Dates: start: 20090701
  4. SOLU-MEDROL [Suspect]
     Dosage: ONE INTAKE
     Route: 040
     Dates: start: 20091005, end: 20091005
  5. SALAZOPYRINE [Concomitant]
     Indication: RHEUMATOID ARTHRITIS
  6. METHOTREXATE [Concomitant]
     Indication: RHEUMATOID ARTHRITIS
     Dates: start: 20090928
  7. PLAQUENIL [Concomitant]
     Indication: RHEUMATOID ARTHRITIS
  8. ENBREL [Concomitant]
     Indication: RHEUMATOID ARTHRITIS
     Dates: start: 20090501, end: 20090801
  9. HUMIRA [Concomitant]
     Indication: RHEUMATOID ARTHRITIS
     Dates: start: 20090801, end: 20090901
  10. CEBUTID [Concomitant]
     Dosage: IN THE EVENING
  11. SPECIAFOLDINE [Concomitant]
     Dates: start: 20090928
  12. INIPOMP [Concomitant]
  13. LAMALINE [Concomitant]

REACTIONS (2)
  - TENDON INJURY [None]
  - THROMBOPHLEBITIS SUPERFICIAL [None]
